FAERS Safety Report 26010620 (Version 2)
Quarter: 2025Q4

REPORT INFORMATION
  Report Type: Report from Study
  Country: CA (occurrence: None)
  Receive Date: 20251107
  Receipt Date: 20251121
  Transmission Date: 20260117
  Serious: Yes (Hospitalization)
  Sender: UCB
  Company Number: CA-UCBSA-2025070214

PATIENT

DRUGS (4)
  1. CERTOLIZUMAB PEGOL [Suspect]
     Active Substance: CERTOLIZUMAB PEGOL
     Indication: Psoriatic arthropathy
     Dosage: 400 MILLIGRAM, EV 2 WEEKS(QOW)
  2. NAPROXEN [Concomitant]
     Active Substance: NAPROXEN
     Indication: Product used for unknown indication
  3. dixillant [Concomitant]
     Indication: Product use in unapproved indication
  4. Vit-B [Concomitant]
     Indication: Product used for unknown indication

REACTIONS (3)
  - Cholelithiasis [Unknown]
  - Cholelithotomy [Unknown]
  - Impaired healing [Unknown]
